FAERS Safety Report 24741401 (Version 1)
Quarter: 2024Q4

REPORT INFORMATION
  Report Type: Spontaneous
  Country: GB (occurrence: GB)
  Receive Date: 20241217
  Receipt Date: 20241217
  Transmission Date: 20250114
  Serious: Yes (Life-Threatening, Other)
  Sender: GLAXOSMITHKLINE
  Company Number: None

PATIENT

DRUGS (6)
  1. BUPROPION [Suspect]
     Active Substance: BUPROPION
     Indication: Product used for unknown indication
     Dosage: UNK
     Route: 065
  2. LISINOPRIL [Suspect]
     Active Substance: LISINOPRIL
     Indication: Product used for unknown indication
     Dosage: UNK
     Route: 065
  3. MIRTAZAPINE [Suspect]
     Active Substance: MIRTAZAPINE
     Indication: Product used for unknown indication
     Dosage: UNK
     Route: 065
  4. AMITRIPTYLINE [Suspect]
     Active Substance: AMITRIPTYLINE
     Indication: Product used for unknown indication
     Dosage: UNK
     Route: 065
  5. SILDENAFIL [Suspect]
     Active Substance: SILDENAFIL
     Indication: Product used for unknown indication
     Dosage: UNK
     Route: 065
  6. ATIVAN [Suspect]
     Active Substance: LORAZEPAM
     Indication: Product used for unknown indication
     Dosage: UNK
     Route: 065

REACTIONS (15)
  - Hypertensive crisis [Unknown]
  - Chills [Unknown]
  - Confusional state [Unknown]
  - Agitation [Unknown]
  - Anxiety [Unknown]
  - Dizziness [Unknown]
  - Nausea [Unknown]
  - Chest pain [Unknown]
  - Vision blurred [Unknown]
  - Hyperhidrosis [Unknown]
  - Pallor [Unknown]
  - Fatigue [Unknown]
  - Drooling [Unknown]
  - Impaired driving ability [Unknown]
  - Stress [Unknown]

NARRATIVE: CASE EVENT DATE: 20241101
